FAERS Safety Report 4405215-4 (Version None)
Quarter: 2004Q3

REPORT INFORMATION
  Report Type: 
  Country: None (occurrence: None)
  Receive Date: 20040723
  Receipt Date: 20040714
  Transmission Date: 20050211
  Serious: Yes (Hospitalization)
  Sender: FDA-Public Use
  Company Number: PHBS2004JP09376

PATIENT
  Age: 75 Year
  Sex: Female

DRUGS (4)
  1. GLEEVEC [Suspect]
     Indication: CHRONIC MYELOID LEUKAEMIA
     Dosage: 400 MG/D
     Route: 048
     Dates: start: 20031022
  2. CLARITIN [Concomitant]
     Dosage: 1 DF/D
     Route: 048
     Dates: start: 20040513
  3. NU-LOTAN [Concomitant]
     Dosage: 50 MG/D
     Route: 048
     Dates: start: 20031022
  4. ALFAROL [Concomitant]
     Dosage: 0.5 UG/D
     Route: 048
     Dates: start: 20031022

REACTIONS (3)
  - SKIN CANCER [None]
  - SKIN NEOPLASM EXCISION [None]
  - SQUAMOUS CELL CARCINOMA [None]
